FAERS Safety Report 7555532-4 (Version None)
Quarter: 2011Q2

REPORT INFORMATION
  Report Type: 
  Country: None (occurrence: None)
  Receive Date: 20110617
  Receipt Date: 20041216
  Transmission Date: 20111010
  Serious: Yes (Death)
  Sender: FDA-Public Use
  Company Number: PHHO2004AT17883

PATIENT
  Sex: Female

DRUGS (3)
  1. TOLVON [Concomitant]
     Dosage: 30 MG DAILY
     Dates: start: 20040201
  2. AXURA [Concomitant]
     Dosage: 10MG DAILY
     Dates: start: 20040201
  3. EXELON [Suspect]
     Indication: DEMENTIA ALZHEIMER'S TYPE
     Dosage: 1.5 MG, BID
     Dates: start: 20040208

REACTIONS (1)
  - PNEUMONIA [None]
